FAERS Safety Report 6531501-8 (Version None)
Quarter: 2010Q1

REPORT INFORMATION
  Report Type: 
  Country: None (occurrence: None)
  Receive Date: 20100108
  Receipt Date: 20100104
  Transmission Date: 20100710
  Serious: Yes (Other)
  Sender: FDA-Public Use
  Company Number: IT-SANOFI-AVENTIS-2010SA000109

PATIENT

DRUGS (1)
  1. GLIBENCLAMIDE [Suspect]
     Route: 065

REACTIONS (6)
  - BREAST CANCER [None]
  - GASTROINTESTINAL CARCINOMA [None]
  - GENITAL NEOPLASM MALIGNANT FEMALE [None]
  - GENITAL NEOPLASM MALIGNANT MALE [None]
  - LUNG NEOPLASM MALIGNANT [None]
  - PANCREATIC CARCINOMA [None]
